FAERS Safety Report 9927768 (Version 3)
Quarter: 2014Q1

REPORT INFORMATION
  Report Type: Spontaneous
  Country: CH (occurrence: CH)
  Receive Date: 20140227
  Receipt Date: 20140331
  Transmission Date: 20141002
  Serious: Yes (Death, Other)
  Sender: FDA-Public Use
  Company Number: CH-009507513-1402CHE012742

PATIENT
  Age: 62 Year
  Sex: Male
  Weight: 70 kg

DRUGS (5)
  1. EZETROL [Suspect]
     Indication: DYSLIPIDAEMIA
     Dosage: 10 MG, QD
     Route: 048
     Dates: start: 20030924, end: 200909
  2. ASPIRIN CARDIO [Concomitant]
  3. SORTIS [Concomitant]
     Indication: HYPERCHOLESTEROLAEMIA
     Dosage: 40 MG, QD
     Route: 048
     Dates: start: 20000117
  4. SORTIS [Concomitant]
     Dosage: 20 MG, QD
     Route: 048
     Dates: start: 19990528, end: 19991215
  5. LANSOPRAZOLE [Concomitant]

REACTIONS (8)
  - Large cell lung cancer [Fatal]
  - Metastases to bone [Unknown]
  - Metastatic neoplasm [Unknown]
  - Metastases to bone [Unknown]
  - Metastases to liver [Unknown]
  - Central nervous system lesion [Unknown]
  - Paresis [Unknown]
  - Hypertension [Unknown]
